FAERS Safety Report 5701453-9 (Version None)
Quarter: 2008Q2

REPORT INFORMATION
  Report Type: 
  Country: None (occurrence: None)
  Receive Date: 20080407
  Receipt Date: 20080324
  Transmission Date: 20081010
  Serious: Yes (Death, Life-Threatening, Hospitalization)
  Sender: FDA-Public Use
  Company Number: 2007-02417

PATIENT
  Age: 57 Year
  Sex: Male
  Weight: 67 kg

DRUGS (15)
  1. VELCADE [Suspect]
     Indication: MULTIPLE MYELOMA
     Dosage: 1.3 MG/M2
     Dates: start: 20070222, end: 20070618
  2. DEXAMETHASONE TAB [Concomitant]
  3. PAMIDRONATE DISODIUM [Concomitant]
  4. DUROGESIN (FENTANYL) [Concomitant]
  5. NEORECORMON (EPOETIN BETA) [Concomitant]
  6. SEPTRIN FORTE (SULFAMETHOXAZOLE, TRIMETHOPRIM) [Concomitant]
  7. ACYCLOVIR [Concomitant]
  8. VENTOLIN [Concomitant]
  9. CLINDAMYCIN HCL [Concomitant]
  10. AMERIDE (HYDROCHLOROTHIAZIDE, AMILORIDE HYDROCHLORIDE) [Concomitant]
  11. ENALAPRIL MALEATE [Concomitant]
  12. ALPRAZOLAM [Concomitant]
  13. CLORAZEPATE DIPOTASSIUM [Concomitant]
  14. ATROVENT [Concomitant]
  15. AREDIA [Concomitant]

REACTIONS (14)
  - BLOOD IMMUNOGLOBULIN A INCREASED [None]
  - CANDIDIASIS [None]
  - CARDIAC FAILURE CONGESTIVE [None]
  - DISEASE PROGRESSION [None]
  - HAEMODIALYSIS [None]
  - HYPERCALCAEMIA [None]
  - LUNG INFILTRATION [None]
  - MULTI-ORGAN FAILURE [None]
  - PNEUMONIA [None]
  - PROTEINURIA [None]
  - RENAL FAILURE [None]
  - RESPIRATORY DISTRESS [None]
  - RESPIRATORY FAILURE [None]
  - SUPRAVENTRICULAR TACHYCARDIA [None]
